FAERS Safety Report 4580385-6 (Version None)
Quarter: 2005Q1

REPORT INFORMATION
  Report Type: 
  Country: None (occurrence: None)
  Receive Date: 20050214
  Receipt Date: 20040112
  Transmission Date: 20050727
  Serious: Yes (Other)
  Sender: FDA-Public Use
  Company Number: US-GLAXOSMITHKLINE-A0492580A

PATIENT
  Age: 70 Year
  Sex: Male

DRUGS (7)
  1. LAMICTAL [Suspect]
     Indication: EPILEPSY
     Dosage: 200MG TWICE PER DAY
     Route: 048
     Dates: start: 20030701
  2. VITAMINS C + E [Concomitant]
  3. SYNTHROID [Concomitant]
  4. METOLAZONE [Concomitant]
  5. MOTRIN [Concomitant]
  6. VORTEX [Concomitant]
  7. LISINOPRIL [Concomitant]

REACTIONS (3)
  - CONVULSION [None]
  - FEELING ABNORMAL [None]
  - INSOMNIA [None]
